FAERS Safety Report 7587275-5 (Version None)
Quarter: 2011Q3

REPORT INFORMATION
  Report Type: 
  Country: None (occurrence: None)
  Receive Date: 20110701
  Receipt Date: 20110629
  Transmission Date: 20111222
  Serious: Yes (Other)
  Sender: FDA-Public Use
  Company Number: US-ELI_LILLY_AND_COMPANY-US201103004811

PATIENT
  Sex: Female
  Weight: 94.785 kg

DRUGS (2)
  1. HUMALOG MIX 75/25 [Suspect]
     Indication: DIABETES MELLITUS
     Dosage: 30 U, TID
     Dates: start: 20040101
  2. ASPIRIN [Concomitant]
     Dosage: UNK

REACTIONS (4)
  - CORONARY ARTERIAL STENT INSERTION [None]
  - GLAUCOMA [None]
  - VISUAL ACUITY REDUCED [None]
  - MALAISE [None]
